FAERS Safety Report 10145754 (Version 1)
Quarter: 2014Q2

REPORT INFORMATION
  Report Type: Report from Study
  Country: US (occurrence: US)
  Receive Date: 20140501
  Receipt Date: 20140501
  Transmission Date: 20141212
  Serious: No
  Sender: FDA-Public Use
  Company Number: US-ABBVIE-13P-163-1097037-00

PATIENT
  Sex: Male

DRUGS (15)
  1. CREON [Suspect]
     Indication: PANCREATIC INSUFFICIENCY
  2. LOTRONEX [Concomitant]
     Indication: PRODUCT USED FOR UNKNOWN INDICATION
  3. VALIUM [Concomitant]
     Indication: PROPHYLAXIS
  4. VALIUM [Concomitant]
     Indication: ANXIETY
  5. BENTYL [Concomitant]
     Indication: PROPHYLAXIS
  6. BENTYL [Concomitant]
     Indication: GASTROINTESTINAL PAIN
  7. PAXIL [Concomitant]
     Indication: ANTIDEPRESSANT THERAPY
  8. PROZAC [Concomitant]
     Indication: PRODUCT USED FOR UNKNOWN INDICATION
  9. QUESTRAN [Concomitant]
     Indication: PRODUCT USED FOR UNKNOWN INDICATION
  10. TOFRANIL [Concomitant]
     Indication: PRODUCT USED FOR UNKNOWN INDICATION
  11. LINACLOTIDE [Concomitant]
     Indication: PRODUCT USED FOR UNKNOWN INDICATION
  12. AMITIZA [Concomitant]
     Indication: PRODUCT USED FOR UNKNOWN INDICATION
  13. MILK OF MAGNESIA [Concomitant]
     Indication: PRODUCT USED FOR UNKNOWN INDICATION
  14. LACTULOSE [Concomitant]
     Indication: PRODUCT USED FOR UNKNOWN INDICATION
  15. MIRALAX [Concomitant]
     Indication: PRODUCT USED FOR UNKNOWN INDICATION

REACTIONS (11)
  - Hyperhidrosis [Unknown]
  - Abdominal pain upper [Unknown]
  - Flatulence [Unknown]
  - Insomnia [Unknown]
  - Pruritus [Unknown]
  - Libido decreased [Unknown]
  - Sexual dysfunction [Unknown]
  - Myalgia [Unknown]
  - Arthralgia [Unknown]
  - Dyspnoea [Unknown]
  - Fatigue [Unknown]
